FAERS Safety Report 4468281-6 (Version None)
Quarter: 2004Q4

REPORT INFORMATION
  Report Type: 
  Country: None (occurrence: None)
  Receive Date: 20041007
  Receipt Date: 19970409
  Transmission Date: 20050328
  Serious: Yes (Hospitalization)
  Sender: FDA-Public Use
  Company Number: US-ROCHE-78446

PATIENT
  Age: 51 Year
  Sex: Female

DRUGS (6)
  1. CELLCEPT [Suspect]
     Route: 048
  2. CELLCEPT [Suspect]
     Route: 048
  3. ATGAM [Concomitant]
     Indication: IMMUNOSUPPRESSION
     Route: 042
  4. TACROLIMUS [Concomitant]
     Indication: IMMUNOSUPPRESSION
     Route: 048
  5. PREDNISONE [Concomitant]
     Indication: IMMUNOSUPPRESSION
  6. AZATHIOPRINE [Concomitant]

REACTIONS (7)
  - BLOOD CREATININE INCREASED [None]
  - DIARRHOEA [None]
  - LEUKOCYTOSIS [None]
  - PNEUMONITIS [None]
  - PULMONARY FIBROSIS [None]
  - RESPIRATORY FAILURE [None]
  - VOMITING [None]
